FAERS Safety Report 19055981 (Version 2)
Quarter: 2021Q2

REPORT INFORMATION
  Report Type: Spontaneous
  Country: JP (occurrence: JP)
  Receive Date: 20210325
  Receipt Date: 20210416
  Transmission Date: 20210717
  Serious: Yes (Hospitalization)
  Sender: FDA-Public Use
  Company Number: JP-JNJFOC-20210334269

PATIENT
  Age: 76 Year
  Sex: Female
  Weight: 55.4 kg

DRUGS (8)
  1. GLACTIV [Concomitant]
     Active Substance: SITAGLIPTIN
     Indication: DIABETES MELLITUS
     Dosage: 50 MG, QD, AFTER BREAKFAST
     Route: 048
     Dates: start: 20150107
  2. ATORVASTATIN [Concomitant]
     Active Substance: ATORVASTATIN
     Indication: DYSLIPIDAEMIA
     Dosage: 5 MG, QD, AFTER BREAKFAST
     Route: 048
     Dates: start: 20150107
  3. XARELTO [Suspect]
     Active Substance: RIVAROXABAN
     Indication: ATRIAL FIBRILLATION
     Dosage: 15 MG, QD, AFTER BREAKFAST
     Route: 048
     Dates: start: 20201208
  4. ACETYLSALICYLIC ACID [Suspect]
     Active Substance: ASPIRIN
     Indication: THROMBOSIS PROPHYLAXIS
     Dosage: 100 MG, QD, AFTER BREAKFAST
     Route: 048
     Dates: start: 20201024
  5. IRBESARTAN. [Concomitant]
     Active Substance: IRBESARTAN
     Indication: HYPERTENSION
     Dosage: DALIY 50MG
     Route: 048
     Dates: start: 20150107, end: 20210306
  6. METFORMIN [Concomitant]
     Active Substance: METFORMIN HYDROCHLORIDE
     Indication: DIABETES MELLITUS
     Dosage: DALIY 1000MG
     Route: 048
     Dates: start: 20150107, end: 20210306
  7. DEBERZA [Concomitant]
     Active Substance: TOFOGLIFLOZIN
     Indication: DIABETES MELLITUS
     Dosage: DALIY 10MG
     Route: 048
     Dates: start: 20200824, end: 20210306
  8. FAMOTIDINE. [Concomitant]
     Active Substance: FAMOTIDINE
     Indication: GASTRITIS
     Dosage: 10 MG, QD, AFTER DINNER
     Route: 048
     Dates: start: 20200824

REACTIONS (1)
  - Anaemia [Recovered/Resolved]

NARRATIVE: CASE EVENT DATE: 20210305
